FAERS Safety Report 8317675-7 (Version None)
Quarter: 2012Q2

REPORT INFORMATION
  Report Type: 
  Country: None (occurrence: None)
  Receive Date: 20120427
  Receipt Date: 20110603
  Transmission Date: 20120825
  Serious: No
  Sender: FDA-Public Use
  Company Number: US-GLAXOSMITHKLINE-A0930180A

PATIENT
  Age: 44 Year
  Sex: Female

DRUGS (2)
  1. NO CONCURRENT MEDICATION [Concomitant]
  2. AMERGE [Suspect]
     Indication: MIGRAINE
     Dosage: 1MG AS REQUIRED
     Route: 048
     Dates: start: 20110425, end: 20110425

REACTIONS (5)
  - ADVERSE DRUG REACTION [None]
  - DIZZINESS [None]
  - ABDOMINAL PAIN UPPER [None]
  - NAUSEA [None]
  - VOMITING [None]
